FAERS Safety Report 25249600 (Version 1)
Quarter: 2025Q2

REPORT INFORMATION
  Report Type: Report from Study
  Country: CO (occurrence: CO)
  Receive Date: 20250429
  Receipt Date: 20250429
  Transmission Date: 20250716
  Serious: Yes (Other)
  Sender: ALEXION PHARMACEUTICALS
  Company Number: CO-AstraZeneca-CH-00856340A

PATIENT
  Age: 74 Year

DRUGS (1)
  1. OSIMERTINIB [Suspect]
     Active Substance: OSIMERTINIB
     Indication: Prophylaxis
     Dosage: 80 MILLIGRAM, QD

REACTIONS (3)
  - Mass [Unknown]
  - Headache [Recovering/Resolving]
  - Depression [Unknown]
